FAERS Safety Report 5702361-X (Version None)
Quarter: 2008Q2

REPORT INFORMATION
  Report Type: 
  Country: None (occurrence: None)
  Receive Date: 20080411
  Receipt Date: 20080331
  Transmission Date: 20081010
  Serious: Yes (Other)
  Sender: FDA-Public Use
  Company Number: DE-AMGEN-UK272450

PATIENT
  Sex: Male
  Weight: 83 kg

DRUGS (16)
  1. ARANESP [Suspect]
     Indication: RENAL FAILURE CHRONIC
     Route: 042
     Dates: start: 20080202, end: 20080331
  2. ARANESP [Suspect]
     Route: 042
     Dates: start: 20061201, end: 20070326
  3. ARANESP [Suspect]
     Route: 042
     Dates: start: 20070327, end: 20071020
  4. ACTRAPHANE HM [Concomitant]
     Route: 058
  5. ASPIRIN [Concomitant]
     Route: 065
  6. METOPROLOL TARTRATE [Concomitant]
     Route: 065
  7. CALCIUM ACETATE [Concomitant]
     Route: 065
  8. FERRLECIT [Concomitant]
     Route: 065
  9. L-THYROXIN [Concomitant]
     Route: 065
  10. OMEPRAZOLE [Concomitant]
     Route: 065
  11. RENAGEL [Concomitant]
     Route: 065
  12. WHOLE BLOOD [Concomitant]
     Route: 065
     Dates: start: 20070913
  13. DYNEPO [Concomitant]
     Route: 042
     Dates: start: 20071023, end: 20080131
  14. PANTOZOL [Concomitant]
     Route: 065
  15. ROCALTROL [Concomitant]
     Route: 065
  16. MOVICOL [Concomitant]
     Route: 065

REACTIONS (2)
  - APLASIA PURE RED CELL [None]
  - NEPHROGENIC ANAEMIA [None]
